FAERS Safety Report 5351632-8 (Version None)
Quarter: 2007Q2

REPORT INFORMATION
  Report Type: 
  Country: None (occurrence: None)
  Receive Date: 20070518
  Receipt Date: 20061208
  Transmission Date: 20071010
  Serious: Yes (Other)
  Sender: FDA-Public Use
  Company Number: 200617090US

PATIENT
  Age: 17 Year
  Sex: Male
  Weight: 59 kg

DRUGS (4)
  1. DDAVP [Suspect]
     Indication: COAGULOPATHY
     Dosage: 18 UG ONCE IV
     Route: 042
     Dates: start: 20060823, end: 20060823
  2. DDAVP [Suspect]
     Indication: PROPHYLAXIS
     Dosage: 18 UG ONCE IV
     Route: 042
     Dates: start: 20060823, end: 20060823
  3. AMICAR [Suspect]
     Indication: COAGULOPATHY
     Dosage: 50 MG/KG QID
  4. AMICAR [Suspect]
     Indication: PROPHYLAXIS
     Dosage: 50 MG/KG QID

REACTIONS (3)
  - CHILLS [None]
  - HYPOTENSION [None]
  - NAUSEA [None]
